FAERS Safety Report 8802895 (Version 2)
Quarter: 2012Q4

REPORT INFORMATION
  Report Type: 
  Country: US (occurrence: US)
  Receive Date: 20120924
  Receipt Date: 20121010
  Transmission Date: 20130627
  Serious: Yes (Other)
  Sender: FDA-Public Use
  Company Number: US-PFIZER INC-2012231321

PATIENT
  Age: 72 Year
  Sex: Female
  Weight: 49.89 kg

DRUGS (4)
  1. LATANOPROST [Suspect]
     Indication: GLAUCOMA
     Dosage: one drop in each eye daily
     Route: 047
  2. LATANOPROST [Suspect]
     Dosage: UNK
  3. LUMIGAN [Concomitant]
     Indication: GLAUCOMA
     Dosage: one drop in each eye daily at night
     Route: 047
  4. TIMOLOL [Concomitant]
     Indication: GLAUCOMA
     Dosage: one drop in each eye daily in morning
     Route: 047

REACTIONS (1)
  - Myocardial infarction [Recovered/Resolved]
